FAERS Safety Report 20465752 (Version 2)
Quarter: 2022Q1

REPORT INFORMATION
  Report Type: Report from Study
  Country: US (occurrence: US)
  Receive Date: 20220212
  Receipt Date: 20220326
  Transmission Date: 20220423
  Serious: No
  Sender: FDA-Public Use
  Company Number: US-TAKEDA-US201707957

PATIENT
  Age: 34 Year
  Sex: Male

DRUGS (3)
  1. IDURSULFASE [Suspect]
     Active Substance: IDURSULFASE
     Indication: Mucopolysaccharidosis II
     Dosage: 0.5 MILLIGRAM/KILOGRAM, 1/WEEK
     Route: 041
     Dates: start: 20100204
  2. IDURSULFASE [Suspect]
     Active Substance: IDURSULFASE
     Dosage: 0.46 MILLIGRAM/KILOGRAM, 1/WEEK
     Route: 041
     Dates: start: 20120726
  3. IDURSULFASE [Suspect]
     Active Substance: IDURSULFASE
     Dosage: 0.5 MILLIGRAM/KILOGRAM, 1/WEEK
     Route: 042
     Dates: start: 20150205

REACTIONS (1)
  - Endoscopy upper gastrointestinal tract [Recovered/Resolved]

NARRATIVE: CASE EVENT DATE: 20160126
